FAERS Safety Report 5049374-1 (Version None)
Quarter: 2006Q3

REPORT INFORMATION
  Report Type: 
  Country: None (occurrence: None)
  Receive Date: 20060712
  Receipt Date: 20060707
  Transmission Date: 20061208
  Serious: Yes (Other)
  Sender: FDA-Public Use
  Company Number: DE-GLAXOSMITHKLINE-D0050246B

PATIENT
  Age: 7 Day
  Sex: Male
  Weight: 19.8 kg

DRUGS (2)
  1. RETROVIR [Suspect]
     Indication: ANTIVIRAL PROPHYLAXIS
     Dosage: 3MG FOUR TIMES PER DAY
     Route: 042
     Dates: start: 20030614, end: 20030623
  2. RETROVIR [Concomitant]
     Indication: HIV INFECTION
     Dates: end: 20030614

REACTIONS (1)
  - NECROTISING COLITIS [None]
